FAERS Safety Report 8840504 (Version 1)
Quarter: 2012Q4

REPORT INFORMATION
  Report Type: 
  Country: US (occurrence: US)
  Receive Date: 20121015
  Receipt Date: 20121015
  Transmission Date: 20130627
  Serious: Yes (Other)
  Sender: FDA-Public Use
  Company Number: US-ELI_LILLY_AND_COMPANY-US201210000941

PATIENT
  Sex: Female

DRUGS (14)
  1. CYMBALTA [Suspect]
     Indication: BURNING FEET SYNDROME
     Dosage: 30 mg, unknown
     Dates: start: 201203
  2. CYMBALTA [Suspect]
     Dosage: 60 mg, UNK
  3. CYMBALTA [Suspect]
     Dosage: 40 mg, unknown
  4. CYMBALTA [Suspect]
     Dosage: 60 mg, qd
  5. HUMIRA [Concomitant]
     Indication: RHEUMATOID ARTHRITIS
     Dosage: 1 DF, 2/M
     Dates: start: 2012, end: 2012
  6. HUMIRA [Concomitant]
     Dosage: 1 DF, weekly (1/W)
     Dates: start: 2012
  7. CRESTOR [Concomitant]
     Indication: BLOOD CHOLESTEROL INCREASED
     Route: 048
  8. FISH OIL [Concomitant]
     Indication: PROPHYLAXIS
     Dosage: 500 mg, qd
     Route: 048
  9. METHOTREXATE [Concomitant]
     Indication: RHEUMATOID ARTHRITIS
     Dosage: UNK
  10. FOLIC ACID [Concomitant]
     Dosage: 1 DF, qd
  11. CALCIUM [Concomitant]
  12. TYLENOL /00020001/ [Concomitant]
     Indication: BURNING FEET SYNDROME
  13. ISOPROPYL ALCOHOL [Concomitant]
     Indication: BURNING FEET SYNDROME
     Route: 061
  14. EPSOM SALTS [Concomitant]
     Indication: BURNING FEET SYNDROME
     Route: 061

REACTIONS (17)
  - Catheterisation cardiac [Unknown]
  - Chest discomfort [Unknown]
  - Insomnia [Unknown]
  - Psychomotor hyperactivity [Unknown]
  - Cardiac stress test abnormal [Unknown]
  - Cardiac monitoring abnormal [Unknown]
  - Feeling abnormal [Unknown]
  - Off label use [Not Recovered/Not Resolved]
  - Fatigue [Unknown]
  - Blood iron decreased [Unknown]
  - White blood cell count decreased [Unknown]
  - Vitamin B12 decreased [Unknown]
  - Decreased appetite [Unknown]
  - Spinal disorder [Unknown]
  - Palpitations [Recovered/Resolved]
  - Dyspnoea [Recovered/Resolved]
  - Vitamin D decreased [Unknown]
